FAERS Safety Report 19873950 (Version 6)
Quarter: 2021Q4

REPORT INFORMATION
  Report Type: Spontaneous
  Country: US (occurrence: US)
  Receive Date: 20210923
  Receipt Date: 20211119
  Transmission Date: 20220303
  Serious: Yes (Disabling)
  Sender: FDA-Public Use
  Company Number: US-SA-SAC20210920000064

PATIENT
  Age: 65 Year
  Sex: Male

DRUGS (30)
  1. DUPIXENT [Suspect]
     Active Substance: DUPILUMAB
     Indication: Asthma
     Dosage: 300 MG, QOW
     Route: 058
     Dates: start: 20210819
  2. ACYCLOVIR [Concomitant]
     Active Substance: ACYCLOVIR
     Dosage: UNK
  3. ACYCLOVIR [Concomitant]
     Active Substance: ACYCLOVIR
     Dosage: UNK
  4. AZATHIOPRINE [Concomitant]
     Active Substance: AZATHIOPRINE
     Dosage: UNK
  5. AZITHROMYCIN [Concomitant]
     Active Substance: AZITHROMYCIN
     Dosage: UNK
  6. AZITHROMYCIN [Concomitant]
     Active Substance: AZITHROMYCIN
  7. BACTRIM [Concomitant]
     Active Substance: SULFAMETHOXAZOLE\TRIMETHOPRIM
     Dosage: UNK
  8. BACTRIM [Concomitant]
     Active Substance: SULFAMETHOXAZOLE\TRIMETHOPRIM
  9. CALCIUM [Concomitant]
     Active Substance: CALCIUM
     Dosage: UNK
  10. FAMOTIDINE [Concomitant]
     Active Substance: FAMOTIDINE
     Dosage: UNK
  11. FAMOTIDINE [Concomitant]
     Active Substance: FAMOTIDINE
  12. FLUTICASONE [Concomitant]
     Active Substance: FLUTICASONE
     Dosage: UNK
  13. FLUTICASONE [Concomitant]
     Active Substance: FLUTICASONE
  14. ALBUTEROL\IPRATROPIUM [Concomitant]
     Active Substance: ALBUTEROL\IPRATROPIUM
     Dosage: UNK
  15. LORATADINE [Concomitant]
     Active Substance: LORATADINE
     Dosage: UNK
  16. METFORMIN [Concomitant]
     Active Substance: METFORMIN HYDROCHLORIDE
     Dosage: UNK
  17. MONTELUKAST [Concomitant]
     Active Substance: MONTELUKAST SODIUM
     Dosage: UNK
  18. PREDNISONE [Concomitant]
     Active Substance: PREDNISONE
     Dosage: UNK
  19. PREDNISONE [Concomitant]
     Active Substance: PREDNISONE
  20. URSODIOL [Concomitant]
     Active Substance: URSODIOL
     Dosage: UNK
  21. WIXELA INHUB [Concomitant]
     Active Substance: FLUTICASONE PROPIONATE\SALMETEROL XINAFOATE
     Dosage: UNK
  22. XARELTO [Concomitant]
     Active Substance: RIVAROXABAN
     Dosage: UNK
  23. REVLIMID [Concomitant]
     Active Substance: LENALIDOMIDE
     Dosage: UNK
  24. CENTRUM SILVER [ASCORBIC ACID;CALCIUM;MINERALS NOS;RETINOL;TOCOPHERYL [Concomitant]
     Dosage: UNK
  25. ACETAMINOPHEN [Concomitant]
     Active Substance: ACETAMINOPHEN
     Dosage: UNK
  26. ACETAMINOPHEN [Concomitant]
     Active Substance: ACETAMINOPHEN
  27. MAGNESIUM [Concomitant]
     Active Substance: MAGNESIUM
     Dosage: UNK
  28. CALCIUM\ERGOCALCIFEROL [Concomitant]
     Active Substance: CALCIUM\ERGOCALCIFEROL
  29. ALBUTEROL [Concomitant]
     Active Substance: ALBUTEROL
  30. MAGNESIUM OXIDE [Concomitant]
     Active Substance: MAGNESIUM OXIDE

REACTIONS (8)
  - Asthma [Recovered/Resolved]
  - Loss of personal independence in daily activities [Not Recovered/Not Resolved]
  - Impaired quality of life [Not Recovered/Not Resolved]
  - Cough [Not Recovered/Not Resolved]
  - Stress [Not Recovered/Not Resolved]
  - Depressed mood [Not Recovered/Not Resolved]
  - Hypoaesthesia [Recovered/Resolved]
  - Swelling face [Recovered/Resolved]
